FAERS Safety Report 21902527 (Version 2)
Quarter: 2023Q1

REPORT INFORMATION
  Report Type: Spontaneous
  Country: AT (occurrence: AT)
  Receive Date: 20230124
  Receipt Date: 20230206
  Transmission Date: 20230418
  Serious: Yes (Hospitalization, Other)
  Sender: FDA-Public Use
  Company Number: AT-CELLTRION INC.-2023AT000995

PATIENT

DRUGS (4)
  1. RITUXIMAB [Suspect]
     Active Substance: RITUXIMAB
     Indication: B-cell small lymphocytic lymphoma
     Dosage: 2016 JUNE 6 CYCLES OF RITUXIMAB 2020 MAY 6 CYCLE RITUXIMAB
     Dates: start: 201606
  2. RITUXIMAB [Suspect]
     Active Substance: RITUXIMAB
     Dosage: 2016 JUNE 6 CYCLES OF RITUXIMAB 2020 MAY 6 CYCLE RITUXIMAB
     Dates: start: 202005, end: 202011
  3. BENDAMUSTINE [Suspect]
     Active Substance: BENDAMUSTINE
     Indication: B-cell small lymphocytic lymphoma
     Dosage: 2016 JUNE 6 CYCLES OF 2020 MAY 6 CYCLE BENDAMUSTINE
     Dates: start: 201606
  4. BENDAMUSTINE [Suspect]
     Active Substance: BENDAMUSTINE
     Dosage: 2016 JUNE 6 CYCLES OF 2020 MAY 6 CYCLE BENDAMUSTINE
     Dates: start: 202005, end: 202011

REACTIONS (7)
  - Epstein-Barr virus infection reactivation [Unknown]
  - Humoral immune defect [Unknown]
  - COVID-19 [Recovered/Resolved]
  - COVID-19 [Not Recovered/Not Resolved]
  - Viral mutation identified [Unknown]
  - Therapeutic response decreased [Unknown]
  - Off label use [Unknown]

NARRATIVE: CASE EVENT DATE: 20191001
